FAERS Safety Report 15762140 (Version 1)
Quarter: 2018Q4

REPORT INFORMATION
  Report Type: Spontaneous
  Country: US (occurrence: US)
  Receive Date: 20181226
  Receipt Date: 20181226
  Transmission Date: 20190205
  Serious: No
  Sender: FDA-Public Use
  Company Number: US-PFIZER INC-2017131581

PATIENT
  Age: 25 Year
  Sex: Female

DRUGS (1)
  1. GENOTROPIN [Suspect]
     Active Substance: SOMATROPIN
     Indication: GROWTH HORMONE DEFICIENCY
     Dosage: 0.6 MG, DAILY
     Route: 058
     Dates: start: 20160328

REACTIONS (6)
  - Aspartate aminotransferase decreased [Unknown]
  - Haematocrit increased [Unknown]
  - Product dose omission [Unknown]
  - Thyroxine increased [Unknown]
  - Red blood cell count increased [Unknown]
  - Device breakage [Unknown]

NARRATIVE: CASE EVENT DATE: 20180205
